FAERS Safety Report 5844698-X (Version None)
Quarter: 2008Q3

REPORT INFORMATION
  Report Type: 
  Country: None (occurrence: None)
  Receive Date: 20080814
  Receipt Date: 20080708
  Transmission Date: 20090109
  Serious: No
  Sender: FDA-Public Use
  Company Number: US-BAYER-200828709NA

PATIENT
  Age: 61 Year
  Sex: Female

DRUGS (1)
  1. MAGNEVIST [Suspect]
     Indication: NUCLEAR MAGNETIC RESONANCE IMAGING THORACIC
     Dosage: TOTAL DAILY DOSE: 20 ML
     Route: 042
     Dates: start: 20080708, end: 20080708

REACTIONS (2)
  - ERYTHEMA [None]
  - FLUSHING [None]
